FAERS Safety Report 5798114-7 (Version None)
Quarter: 2008Q3

REPORT INFORMATION
  Report Type: 
  Country: None (occurrence: None)
  Receive Date: 20080702
  Receipt Date: 20070808
  Transmission Date: 20090109
  Serious: Yes (Other)
  Sender: FDA-Public Use
  Company Number: US-ASTRAZENECA-2007UW06923

PATIENT
  Age: 73 Year
  Sex: Male
  Weight: 84.4 kg

DRUGS (8)
  1. ZOLADEX [Suspect]
     Indication: PROSTATE CANCER
     Route: 058
     Dates: start: 20061215, end: 20070401
  2. ZOLADEX [Suspect]
     Route: 058
     Dates: start: 20070424
  3. ASPIRIN [Concomitant]
  4. COZAAR [Concomitant]
     Indication: HYPERTENSION
  5. NADOLOL [Concomitant]
     Indication: HYPERTENSION
  6. GLIPIZIDE [Concomitant]
  7. TYLENOL [Concomitant]
  8. LIPITOR [Concomitant]

REACTIONS (2)
  - BLOOD PRESSURE INCREASED [None]
  - COUGH [None]
